FAERS Safety Report 16151343 (Version 1)
Quarter: 2019Q2

REPORT INFORMATION
  Report Type: Spontaneous
  Country: US (occurrence: US)
  Receive Date: 20190403
  Receipt Date: 20190403
  Transmission Date: 20190711
  Serious: Yes (Disabling)
  Sender: FDA-Public Use
  Company Number: US-009507513-1903USA011798

PATIENT
  Sex: Female

DRUGS (2)
  1. PROVENTIL [Suspect]
     Active Substance: ALBUTEROL
     Dosage: UNK UNK, UNKNOWN
     Route: 055
     Dates: start: 20190323
  2. PROVENTIL [Suspect]
     Active Substance: ALBUTEROL
     Dosage: PAST YEARS AGO

REACTIONS (5)
  - Product dose omission [Unknown]
  - Product quality issue [Unknown]
  - Dyspnoea [Unknown]
  - Visual impairment [Unknown]
  - Tremor [Unknown]

NARRATIVE: CASE EVENT DATE: 2019
